FAERS Safety Report 10632920 (Version 2)
Quarter: 2014Q4

REPORT INFORMATION
  Report Type: Spontaneous
  Country: US (occurrence: US)
  Receive Date: 20141205
  Receipt Date: 20141205
  Transmission Date: 20150529
  Serious: No
  Sender: FDA-Public Use
  Company Number: US-BRISTOL-MYERS SQUIBB COMPANY-21417845

PATIENT
  Age: 57 Year
  Sex: Male

DRUGS (2)
  1. GINGER. [Concomitant]
     Active Substance: GINGER
  2. ORENCIA [Suspect]
     Active Substance: ABATACEPT
     Indication: RHEUMATOID ARTHRITIS
     Route: 058
     Dates: start: 201408, end: 201409

REACTIONS (2)
  - Pain [Recovered/Resolved]
  - Abdominal pain upper [Recovered/Resolved]
